FAERS Safety Report 6550783-X (Version None)
Quarter: 2010Q1

REPORT INFORMATION
  Report Type: 
  Country: None (occurrence: None)
  Receive Date: 20100125
  Receipt Date: 20100115
  Transmission Date: 20100710
  Serious: Yes (Hospitalization)
  Sender: FDA-Public Use
  Company Number: PHHY2009JP42317

PATIENT
  Sex: Male
  Weight: 3.168 kg

DRUGS (6)
  1. CYCLOSPORINE [Suspect]
     Indication: RENAL TRANSPLANT
     Dosage: MATERNAL DOSE 300MG
     Route: 064
     Dates: start: 20020101
  2. CYCLOSPORINE [Suspect]
     Dosage: MATERNAL DOSE 150 MG
     Route: 064
     Dates: start: 20020101
  3. AZATHIOPRINE [Suspect]
     Route: 064
  4. HUMALOG [Suspect]
     Route: 064
  5. LANTUS [Suspect]
     Route: 064
  6. NICARDIPINE HYDROCHLORIDE [Suspect]
     Route: 064

REACTIONS (6)
  - APNOEIC ATTACK [None]
  - BLOOD CREATININE INCREASED [None]
  - BLOOD UREA INCREASED [None]
  - DRUG EXPOSURE DURING PREGNANCY [None]
  - HYPERBILIRUBINAEMIA [None]
  - HYPOGLYCAEMIA NEONATAL [None]
